FAERS Safety Report 14528461 (Version 2)
Quarter: 2018Q2

REPORT INFORMATION
  Report Type: Spontaneous
  Country: US (occurrence: US)
  Receive Date: 20180214
  Receipt Date: 20180418
  Transmission Date: 20180711
  Serious: No
  Sender: FDA-Public Use
  Company Number: US-BRISTOL-MYERS SQUIBB COMPANY-BMS-2018-011836

PATIENT
  Sex: Female

DRUGS (1)
  1. OPDIVO [Suspect]
     Active Substance: NIVOLUMAB
     Indication: MALIGNANT MELANOMA
     Dosage: ONE
     Route: 042
     Dates: start: 20180126

REACTIONS (6)
  - Pruritus [Unknown]
  - Constipation [Unknown]
  - Proctitis fungal [Unknown]
  - Hypophagia [Unknown]
  - Condition aggravated [Unknown]
  - Vulvovaginal mycotic infection [Unknown]
